FAERS Safety Report 7993795-1 (Version None)
Quarter: 2011Q4

REPORT INFORMATION
  Report Type: 
  Country: None (occurrence: None)
  Receive Date: 20111220
  Receipt Date: 20111212
  Transmission Date: 20120403
  Serious: No
  Sender: FDA-Public Use
  Company Number: US-BIOGENIDEC-2011BI047045

PATIENT
  Sex: Female

DRUGS (2)
  1. AVONEX [Concomitant]
     Indication: MULTIPLE SCLEROSIS
     Route: 030
     Dates: start: 20030620
  2. TYSABRI [Suspect]
     Indication: MULTIPLE SCLEROSIS
     Route: 042
     Dates: start: 20090109

REACTIONS (5)
  - UPPER RESPIRATORY TRACT CONGESTION [None]
  - FATIGUE [None]
  - NASOPHARYNGITIS [None]
  - DECREASED INTEREST [None]
  - OROPHARYNGEAL PAIN [None]
